FAERS Safety Report 12717626 (Version 1)
Quarter: 2016Q3

REPORT INFORMATION
  Report Type: Spontaneous
  Country: CH (occurrence: CH)
  Receive Date: 20160906
  Receipt Date: 20160906
  Transmission Date: 20161109
  Serious: Yes (Hospitalization, Other)
  Sender: FDA-Public Use
  Company Number: CH-SHIRE-CH201611780

PATIENT
  Age: 66 Year
  Sex: Male

DRUGS (9)
  1. CEFTRIAXON LABATEC [Concomitant]
     Indication: PRODUCT USED FOR UNKNOWN INDICATION
     Dosage: 2 G, OTHER (BOLUS, 2 PER 1 DAY)
     Route: 042
     Dates: start: 20160809, end: 20160811
  2. HEPARIN SODIUM. [Suspect]
     Active Substance: HEPARIN SODIUM
     Indication: PRODUCT USED FOR UNKNOWN INDICATION
     Dosage: 10000 IU, 1X/DAY:QD
     Route: 042
     Dates: start: 20160727, end: 20160728
  3. FLOXAPEN                           /00239102/ [Concomitant]
     Active Substance: FLUCLOXACILLIN
     Indication: PRODUCT USED FOR UNKNOWN INDICATION
     Dosage: 2 G, OTHER (BOLUS, 6 PER 1 DAY)
     Route: 042
     Dates: start: 20160809, end: 20160811
  4. ARGATRA [Suspect]
     Active Substance: ARGATROBAN
     Indication: VENOUS THROMBOSIS
     Dosage: 0.5 ?G/KG, OTHER (1 PER 1 MINUTE)
     Route: 041
     Dates: start: 20160809
  5. TENORMIN [Concomitant]
     Active Substance: ATENOLOL
     Indication: PRODUCT USED FOR UNKNOWN INDICATION
     Dosage: 50 MG, 1X/DAY:QD
     Route: 048
     Dates: start: 20160809, end: 20160817
  6. LITALIR [Concomitant]
     Active Substance: HYDROXYUREA
     Indication: PRODUCT USED FOR UNKNOWN INDICATION
     Dosage: 1000 MG, OTHER (TWO 500 MG PER DAY)
     Route: 048
     Dates: start: 20160809, end: 20160811
  7. ZYLORIC [Concomitant]
     Active Substance: ALLOPURINOL
     Indication: PRODUCT USED FOR UNKNOWN INDICATION
     Dosage: 100 MG, 1X/DAY:QD
     Route: 048
     Dates: start: 20160809, end: 20160817
  8. XAGRID [Suspect]
     Active Substance: ANAGRELIDE HYDROCHLORIDE
     Indication: MYELODYSPLASTIC SYNDROME
     Dosage: 0.5 MG, UNKNOWN (2 PER 1 DAY)
     Route: 048
     Dates: end: 20160811
  9. DESFERAL [Concomitant]
     Active Substance: DEFEROXAMINE MESYLATE
     Indication: PRODUCT USED FOR UNKNOWN INDICATION
     Dosage: 3500 MG, OTHER (BOLUS, 1 PER 1 DAY)
     Route: 042
     Dates: start: 20160704, end: 20160811

REACTIONS (7)
  - Heparin-induced thrombocytopenia [Recovering/Resolving]
  - Pain in extremity [Unknown]
  - Product use issue [Recovered/Resolved]
  - Sinusitis [Unknown]
  - Pulmonary alveolar haemorrhage [Recovering/Resolving]
  - Venous thrombosis [Recovering/Resolving]
  - Pulmonary embolism [Recovering/Resolving]

NARRATIVE: CASE EVENT DATE: 201607
